FAERS Safety Report 7541600-X (Version None)
Quarter: 2011Q2

REPORT INFORMATION
  Report Type: 
  Country: None (occurrence: None)
  Receive Date: 20110613
  Receipt Date: 20110601
  Transmission Date: 20111010
  Serious: Yes (Other)
  Sender: FDA-Public Use
  Company Number: CA-ELI_LILLY_AND_COMPANY-CA201106000267

PATIENT
  Sex: Female

DRUGS (5)
  1. CLONAZEPAM [Concomitant]
  2. SEROQUEL [Concomitant]
  3. EFFEXOR XR [Concomitant]
  4. ZYPREXA [Suspect]
     Dosage: 15 MG, QD
  5. WELLBUTRIN [Concomitant]

REACTIONS (6)
  - PANCREATIC MASS [None]
  - DIABETES MELLITUS [None]
  - ASPARTATE AMINOTRANSFERASE INCREASED [None]
  - BLOOD TRIGLYCERIDES INCREASED [None]
  - ALANINE AMINOTRANSFERASE INCREASED [None]
  - BLOOD CHOLESTEROL INCREASED [None]
